FAERS Safety Report 7589700-2 (Version None)
Quarter: 2011Q3

REPORT INFORMATION
  Report Type: 
  Country: None (occurrence: None)
  Receive Date: 20110705
  Receipt Date: 20110624
  Transmission Date: 20111222
  Serious: Yes (Hospitalization, Other)
  Sender: FDA-Public Use
  Company Number: GR-PFIZER INC-2011140934

PATIENT
  Age: 75 Year
  Sex: Male

DRUGS (1)
  1. SUNITINIB MALATE [Suspect]
     Indication: RENAL CELL CARCINOMA
     Dosage: 50 MG, 1X/DAY (CYCLES OF 4 WKS ON, 2 WKS OFF)

REACTIONS (7)
  - HAEMATOCRIT DECREASED [None]
  - HAEMORRHAGIC ASCITES [None]
  - ECCHYMOSIS [None]
  - VOMITING [None]
  - PERICARDIAL EFFUSION [None]
  - DYSPNOEA [None]
  - PLEURAL EFFUSION [None]
